FAERS Safety Report 8759804 (Version 4)
Quarter: 2012Q4

REPORT INFORMATION
  Report Type: 
  Country: US (occurrence: US)
  Receive Date: 20120829
  Receipt Date: 20121227
  Transmission Date: 20130627
  Serious: Yes (Hospitalization, Other)
  Sender: FDA-Public Use
  Company Number: US-ASTRAZENECA-2011SE01067

PATIENT
  Age: 81 Year
  Sex: Female

DRUGS (5)
  1. NEXIUM [Suspect]
     Route: 048
     Dates: end: 2006
  2. PRILOSEC OTC [Suspect]
     Route: 048
  3. CRESTOR [Suspect]
     Route: 048
  4. CALCIUM [Concomitant]
  5. CENTRUM SILVER [Concomitant]

REACTIONS (13)
  - Hiatus hernia [Unknown]
  - Gastrooesophageal reflux disease [Unknown]
  - Dyspepsia [Unknown]
  - Rheumatoid arthritis [Unknown]
  - Dysphonia [Unknown]
  - Aphonia [Unknown]
  - Dysphagia [Unknown]
  - Disease recurrence [Unknown]
  - Drug ineffective [Unknown]
  - Nasopharyngitis [Unknown]
  - Dyspepsia [Unknown]
  - Abdominal discomfort [Unknown]
  - Drug dose omission [Unknown]
